FAERS Safety Report 5629923-2 (Version None)
Quarter: 2008Q1

REPORT INFORMATION
  Report Type: 
  Country: None (occurrence: None)
  Receive Date: 20080213
  Receipt Date: 20080130
  Transmission Date: 20080703
  Serious: Yes (Death)
  Sender: FDA-Public Use
  Company Number: DSJ-2007-10701

PATIENT
  Age: 79 Year
  Sex: Male

DRUGS (7)
  1. OLMESARTAN MEDOXOMIL [Suspect]
     Indication: HYPERTENSION
     Dosage: 20 MG (20 MG, 1 IN 1 D), PER ORAL
     Route: 048
     Dates: start: 20070501, end: 20071009
  2. CASODEX [Suspect]
     Indication: PROSTATE CANCER
     Dosage: 80 MG (80 MG, 1 IN 1 D), PER ORAL
     Route: 048
     Dates: start: 20040519, end: 20071009
  3. TENORMIN [Suspect]
     Indication: HYPERTENSION
     Dosage: 25 MG (25 MG, 1 IN 1 D), PER ORAL
     Route: 048
     Dates: start: 19970101, end: 20071009
  4. SUNRYTHM (PILSICAINIDE HYDROCHLORIDE) [Suspect]
     Indication: ATRIAL FIBRILLATION
     Dosage: 50 MG (2 IN 1 D), PER ORAL
     Route: 048
     Dates: start: 20030101, end: 20071009
  5. FAMOTIDINE [Suspect]
     Indication: GASTRIC ULCER
     Dosage: 10 MG (2 IN 1 D), PER ORAL
     Route: 048
     Dates: end: 20071009
  6. DEPAS          (ETIZOLAM) (TABLET) (ETIZOLAM) [Suspect]
     Indication: INSOMNIA
     Dosage: 0.5 MG (0.5 MG, 1 IN 1 D), PER ORAL
     Route: 048
     Dates: end: 20071009
  7. WARFARIN SODIUM [Concomitant]

REACTIONS (18)
  - ACUTE RESPIRATORY FAILURE [None]
  - ANAEMIA [None]
  - ATRIAL FIBRILLATION [None]
  - BRONCHIECTASIS [None]
  - CHEST PAIN [None]
  - DIABETIC NEPHROPATHY [None]
  - GLUCOSE TOLERANCE IMPAIRED [None]
  - HAEMOPTYSIS [None]
  - INTERSTITIAL LUNG DISEASE [None]
  - OCCULT BLOOD POSITIVE [None]
  - PNEUMOCONIOSIS [None]
  - PNEUMONIA VIRAL [None]
  - PULMONARY ALVEOLAR HAEMORRHAGE [None]
  - PULMONARY FIBROSIS [None]
  - RENAL ATROPHY [None]
  - RENAL IMPAIRMENT [None]
  - SPLENOMEGALY [None]
  - VASCULITIS [None]
